FAERS Safety Report 9475847 (Version 1)
Quarter: 2013Q3

REPORT INFORMATION
  Report Type: Spontaneous
  Country: US (occurrence: None)
  Receive Date: 20130801
  Receipt Date: 20130801
  Transmission Date: 20140515
  Serious: Yes (Other)
  Sender: FDA-Public Use
  Company Number: US-BIOTEST-T 303/13

PATIENT
  Age: 51 Year
  Sex: Female

DRUGS (4)
  1. BIVIGAM [Suspect]
     Indication: CHRONIC INFLAMMATORY DEMYELINATING POLYRADICULONEUROPATHY
     Route: 041
     Dates: start: 20130717, end: 20130717
  2. AMITRIPTYLINE [Concomitant]
  3. TYLENOL [Concomitant]
  4. TRAMADOL [Concomitant]

REACTIONS (2)
  - Anaphylactic reaction [None]
  - Off label use [None]
